FAERS Safety Report 6130952-3 (Version None)
Quarter: 2009Q1

REPORT INFORMATION
  Report Type: 
  Country: None (occurrence: None)
  Receive Date: 20090325
  Receipt Date: 20090313
  Transmission Date: 20090719
  Serious: Yes (Hospitalization, Other)
  Sender: FDA-Public Use
  Company Number: JP-SANOFI-SYNTHELABO-A01200812146

PATIENT
  Sex: Male
  Weight: 55 kg

DRUGS (6)
  1. DEXAMETHASONE SODIUM PHOSPHATE [Concomitant]
     Indication: PREMEDICATION
     Dosage: 16 MG
     Route: 041
     Dates: start: 20080609, end: 20080922
  2. BEVACIZUMAB [Concomitant]
     Indication: RECTAL CANCER
     Dosage: 300 MG
     Route: 041
     Dates: start: 20080901, end: 20080901
  3. FLUOROURACIL [Concomitant]
     Indication: RECTAL CANCER
     Dosage: 600 MG
     Route: 040
     Dates: start: 20080818, end: 20080818
  4. FLUOROURACIL [Concomitant]
     Dosage: 3000 MG
     Route: 041
     Dates: start: 20080818, end: 20080819
  5. LEUCOVORIN CALCIUM [Suspect]
     Dosage: 300 MG
     Route: 041
     Dates: start: 20080901, end: 20080901
  6. ELPLAT [Suspect]
     Indication: RECTAL CANCER
     Dosage: 100 MG
     Route: 041
     Dates: start: 20080901, end: 20080901

REACTIONS (2)
  - ALTERED STATE OF CONSCIOUSNESS [None]
  - ANAPHYLACTIC SHOCK [None]
